FAERS Safety Report 7813851-8 (Version None)
Quarter: 2011Q4

REPORT INFORMATION
  Report Type: 
  Country: None (occurrence: None)
  Receive Date: 20111014
  Receipt Date: 20111005
  Transmission Date: 20120403
  Serious: Yes (Other)
  Sender: FDA-Public Use
  Company Number: US-US-EMD SERONO, INC.-7085137

PATIENT
  Sex: Female
  Weight: 77 kg

DRUGS (5)
  1. PROZAC [Concomitant]
  2. REBIF [Suspect]
     Dates: start: 20110810, end: 20110829
  3. PROVIGIL [Concomitant]
  4. MAXALT [Concomitant]
  5. REBIF [Suspect]
     Indication: MULTIPLE SCLEROSIS
     Dates: start: 20110808, end: 20110810

REACTIONS (6)
  - MIGRAINE [None]
  - FACIAL PAIN [None]
  - DEPRESSION [None]
  - IRRITABLE BOWEL SYNDROME [None]
  - NAUSEA [None]
  - SUICIDAL IDEATION [None]
